FAERS Safety Report 26071753 (Version 1)
Quarter: 2025Q4

REPORT INFORMATION
  Report Type: Spontaneous
  Country: CA (occurrence: CA)
  Receive Date: 20251120
  Receipt Date: 20251120
  Transmission Date: 20260118
  Serious: Yes (Other)
  Sender: PFIZER
  Company Number: CA-PFIZER INC-202400297766

PATIENT
  Age: 60 Year
  Sex: Female

DRUGS (4)
  1. ABRILADA [Suspect]
     Active Substance: ADALIMUMAB-AFZB
     Indication: Crohn^s disease
     Dosage: 40 MG, WEEKLY
     Route: 058
     Dates: start: 20241114
  2. ABRILADA [Suspect]
     Active Substance: ADALIMUMAB-AFZB
     Dosage: UNK
     Route: 058
     Dates: start: 2025
  3. ABRILADA [Suspect]
     Active Substance: ADALIMUMAB-AFZB
     Dosage: 40 MG, WEEKLY
     Route: 058
     Dates: start: 20251113
  4. PREDNISONE [Concomitant]
     Active Substance: PREDNISONE
     Dosage: UNK

REACTIONS (20)
  - Retinal tear [Recovered/Resolved]
  - Joint abscess [Recovered/Resolved]
  - Uveitis [Unknown]
  - Hypertension [Recovered/Resolved]
  - Upper-airway cough syndrome [Recovering/Resolving]
  - Productive cough [Not Recovered/Not Resolved]
  - Sputum discoloured [Unknown]
  - Rhinitis [Recovering/Resolving]
  - Hypersensitivity [Recovering/Resolving]
  - Vasculitis [Recovered/Resolved]
  - Blood creatine increased [Unknown]
  - Proteinuria [Unknown]
  - Tinnitus [Unknown]
  - Back pain [Unknown]
  - Condition aggravated [Recovering/Resolving]
  - Haematuria [Unknown]
  - Headache [Unknown]
  - Bursitis [Unknown]
  - Blood immunoglobulin A increased [Unknown]
  - Off label use [Unknown]

NARRATIVE: CASE EVENT DATE: 20241201
